FAERS Safety Report 6742556-X (Version None)
Quarter: 2010Q2

REPORT INFORMATION
  Report Type: 
  Country: None (occurrence: None)
  Receive Date: 20100526
  Receipt Date: 20100515
  Transmission Date: 20101027
  Serious: Yes (Hospitalization)
  Sender: FDA-Public Use
  Company Number: US-AMGEN-QUU412717

PATIENT
  Sex: Female

DRUGS (3)
  1. ENBREL [Suspect]
     Indication: PSORIATIC ARTHROPATHY
     Route: 058
     Dates: start: 19981201, end: 20100401
  2. ENBREL [Suspect]
     Indication: PSORIASIS
  3. METHOTREXATE [Concomitant]
     Route: 058
     Dates: start: 19910119

REACTIONS (8)
  - ACQUIRED CLAW TOE [None]
  - DRUG INEFFECTIVE [None]
  - INJECTION SITE PAIN [None]
  - OEDEMA PERIPHERAL [None]
  - PSORIASIS [None]
  - PSORIATIC ARTHROPATHY [None]
  - SINUSITIS [None]
  - SPINAL COLUMN STENOSIS [None]
